FAERS Safety Report 5904737-4 (Version None)
Quarter: 2008Q3

REPORT INFORMATION
  Report Type: 
  Country: None (occurrence: None)
  Receive Date: 20080909
  Receipt Date: 20080501
  Transmission Date: 20090109
  Serious: Yes (Hospitalization)
  Sender: FDA-Public Use
  Company Number: 163-20785-08050347

PATIENT
  Age: 72 Year
  Sex: Female
  Weight: 63.9 kg

DRUGS (16)
  1. THALOMID [Suspect]
     Indication: MULTIPLE MYELOMA
     Dosage: 200-50MG, QOD, ORAL
     Route: 048
     Dates: start: 20041012, end: 20060323
  2. DEXAMETHASONE [Suspect]
     Indication: MULTIPLE MYELOMA
     Dosage: 40-20MG, QD, ORAL
     Route: 048
     Dates: start: 20041012, end: 20060323
  3. VELCADE [Suspect]
     Indication: MULTIPLE MYELOMA
     Dosage: 1 MG/M2
     Dates: start: 20041009, end: 20060323
  4. MODIUM (LOPERAMIDE) (CAPSULES) [Concomitant]
  5. ACYCLOVIR (ACICLOVIR) (TABLETS) [Concomitant]
  6. LEVAQUIN [Concomitant]
  7. LOVENOX [Concomitant]
  8. METOPROLOL TARTRATE (METOPROLOL TARTRATE) (TABLETS) [Concomitant]
  9. PROTONIX (PANTOPRAZOLE) (TABLETS) [Concomitant]
  10. ARANESP [Concomitant]
  11. SYNTHROID (LEVOTHYROXINE SODIUM) (TABLETS) [Concomitant]
  12. MULTIPLE VITAMIN (MULTIVITAMINS) (TABLETS) [Concomitant]
  13. POTASSIUM CHLORIDE [Concomitant]
  14. DAPSONE (DAPSONE) (TABLETS) [Concomitant]
  15. ZANTAC (RANITIDINE HYDROCHLORIDE) (CAPSULES) [Concomitant]
  16. DIFLUCAN [Concomitant]

REACTIONS (1)
  - DYSPNOEA [None]
